FAERS Safety Report 17600347 (Version 1)
Quarter: 2020Q1

REPORT INFORMATION
  Report Type: Spontaneous
  Country: FR (occurrence: FR)
  Receive Date: 20200330
  Receipt Date: 20200330
  Transmission Date: 20200409
  Serious: Yes (Life-Threatening, Other)
  Sender: FDA-Public Use
  Company Number: FR-SA-2020SA077562

PATIENT
  Age: 67 Year
  Sex: Male
  Weight: 78.2 kg

DRUGS (4)
  1. GENTAMICIN SULFATE. [Interacting]
     Active Substance: GENTAMICIN SULFATE
     Indication: LUNG DISORDER
     Dosage: 3 MG/KG, QD
     Route: 051
     Dates: start: 20200210
  2. RIFAMPICIN [Suspect]
     Active Substance: RIFAMPIN
     Indication: LUNG DISORDER
     Dosage: 15 MG/KG, QD
     Route: 051
     Dates: start: 20200210
  3. FLUINDIONE [Interacting]
     Active Substance: FLUINDIONE
     Indication: THROMBOSIS PROPHYLAXIS
     Dosage: 20 MG, QD
     Route: 048
  4. CLOXACILLIN [Interacting]
     Active Substance: CLOXACILLIN
     Indication: LUNG DISORDER
     Dosage: 4 G, TID
     Route: 051
     Dates: start: 20200210

REACTIONS (2)
  - Cerebral haematoma [Recovering/Resolving]
  - Haematoma [Recovered/Resolved]

NARRATIVE: CASE EVENT DATE: 20200215
